FAERS Safety Report 21077932 (Version 4)
Quarter: 2022Q4

REPORT INFORMATION
  Report Type: Spontaneous
  Country: JP (occurrence: JP)
  Receive Date: 20220713
  Receipt Date: 20221220
  Transmission Date: 20230112
  Serious: Yes (Death, Hospitalization)
  Sender: FDA-Public Use
  Company Number: JP-DSJP-DSJ-2022-112268

PATIENT
  Age: 74 Year
  Sex: Female
  Weight: 45.3 kg

DRUGS (10)
  1. ENHERTU [Suspect]
     Active Substance: FAM-TRASTUZUMAB DERUXTECAN-NXKI
     Indication: Breast cancer recurrent
     Dosage: 5.4 MG/KG, ONCE EVERY 3 WK
     Route: 041
     Dates: start: 20220304, end: 20220304
  2. ENHERTU [Suspect]
     Active Substance: FAM-TRASTUZUMAB DERUXTECAN-NXKI
     Dosage: 5.4 MG/KG, ONCE EVERY 3 WK
     Route: 041
     Dates: start: 20220325, end: 20220325
  3. ENHERTU [Suspect]
     Active Substance: FAM-TRASTUZUMAB DERUXTECAN-NXKI
     Dosage: 5.4 MG/KG, ONCE EVERY 3 WK
     Route: 041
     Dates: start: 20220510, end: 20220510
  4. ENHERTU [Suspect]
     Active Substance: FAM-TRASTUZUMAB DERUXTECAN-NXKI
     Dosage: UNK
     Route: 041
     Dates: start: 2022
  5. LAFUTIDINE [Concomitant]
     Active Substance: LAFUTIDINE
     Indication: Duodenal ulcer
     Dosage: 10 MG, BID
     Route: 048
     Dates: start: 20220304, end: 20220519
  6. DICLOFENAC SODIUM [Suspect]
     Active Substance: DICLOFENAC SODIUM
     Indication: Cancer pain
     Dosage: 50 MG, BID
     Route: 054
     Dates: start: 20220304, end: 20220325
  7. SODIUM FERROUS CITRATE [Concomitant]
     Active Substance: SODIUM FERROUS CITRATE
     Indication: Anaemia
     Dosage: 50 MG, BID
     Route: 048
     Dates: start: 20220304, end: 20220519
  8. LYRICA [Concomitant]
     Active Substance: PREGABALIN
     Indication: Cancer pain
     Dosage: 75 MG, BID
     Route: 048
     Dates: start: 20220325, end: 20220519
  9. METOCLOPRAMIDE [Concomitant]
     Active Substance: METOCLOPRAMIDE
     Indication: Nausea
     Dosage: 5 MG, TID
     Route: 048
     Dates: start: 20220517, end: 20220519
  10. METOCLOPRAMIDE [Concomitant]
     Active Substance: METOCLOPRAMIDE
     Indication: Vomiting

REACTIONS (3)
  - Duodenal ulcer haemorrhage [Recovered/Resolved]
  - Sepsis [Fatal]
  - Anaemia [Recovering/Resolving]

NARRATIVE: CASE EVENT DATE: 20220101
